FAERS Safety Report 5030028-2 (Version None)
Quarter: 2006Q2

REPORT INFORMATION
  Report Type: 
  Country: None (occurrence: None)
  Receive Date: 20060614
  Receipt Date: 20060529
  Transmission Date: 20061013
  Serious: Yes (Hospitalization, Other)
  Sender: FDA-Public Use
  Company Number: DE200605002834

PATIENT
  Age: 77 Year
  Sex: Female

DRUGS (5)
  1. GEMZAR [Suspect]
     Indication: TRANSITIONAL CELL CARCINOMA
     Dosage: INTRAVENOUS
     Route: 042
  2. NORVASC [Concomitant]
  3. . [Concomitant]
  4. LE (METAMIZOLE) [Concomitant]
  5. CORTICOSTEROIDS [Concomitant]

REACTIONS (10)
  - ANAEMIA [None]
  - BLOOD CREATININE INCREASED [None]
  - C-REACTIVE PROTEIN INCREASED [None]
  - CARDIAC FAILURE [None]
  - DYSPNOEA [None]
  - HYPERSENSITIVITY [None]
  - LEUKOPENIA [None]
  - OEDEMA PERIPHERAL [None]
  - PLEURAL EFFUSION [None]
  - THROMBOCYTOPENIA [None]
